FAERS Safety Report 6566801-9 (Version None)
Quarter: 2010Q1

REPORT INFORMATION
  Report Type: 
  Country: None (occurrence: None)
  Receive Date: 20100202
  Receipt Date: 20100122
  Transmission Date: 20100710
  Serious: Yes (Other)
  Sender: FDA-Public Use
  Company Number: GB-WATSON-2010-01022

PATIENT
  Age: 57 Year
  Sex: Female

DRUGS (3)
  1. SIMVASTATIN [Suspect]
     Indication: DRUG USE FOR UNKNOWN INDICATION
     Dosage: 10 MG, UNKNOWN
     Route: 048
     Dates: end: 20091203
  2. SIMVASTATIN [Suspect]
     Dosage: 20 MG, UNKNOWN
     Route: 048
  3. SIMVASTATIN [Suspect]
     Dosage: UNK
     Route: 048

REACTIONS (7)
  - ABDOMINAL PAIN [None]
  - BREAST CANCER [None]
  - BREAST CANCER FEMALE [None]
  - CHILLS [None]
  - DIARRHOEA [None]
  - INAPPROPRIATE SCHEDULE OF DRUG ADMINISTRATION [None]
  - RASH [None]
